FAERS Safety Report 7722717-3 (Version None)
Quarter: 2011Q3

REPORT INFORMATION
  Report Type: 
  Country: None (occurrence: None)
  Receive Date: 20110831
  Receipt Date: 20110822
  Transmission Date: 20111222
  Serious: Yes (Hospitalization, Other)
  Sender: FDA-Public Use
  Company Number: US-ASTRAZENECA-2011SE50585

PATIENT
  Sex: Female

DRUGS (2)
  1. ZANTAC [Suspect]
  2. NEXIUM [Suspect]
     Indication: DYSPEPSIA
     Route: 048

REACTIONS (18)
  - SIGMOIDECTOMY [None]
  - CHEST PAIN [None]
  - OEDEMA PERIPHERAL [None]
  - INFLAMMATORY PAIN [None]
  - MIGRAINE [None]
  - RASH [None]
  - MYALGIA [None]
  - LARGE INTESTINE PERFORATION [None]
  - JOINT SWELLING [None]
  - PAIN [None]
  - MEMORY IMPAIRMENT [None]
  - DYSPNOEA [None]
  - MENTAL DISORDER [None]
  - DIVERTICULITIS [None]
  - FISTULA [None]
  - AUTOIMMUNE DISORDER [None]
  - CONTUSION [None]
  - STRESS [None]
